FAERS Safety Report 5351664-X (Version None)
Quarter: 2007Q2

REPORT INFORMATION
  Report Type: 
  Country: None (occurrence: None)
  Receive Date: 20070521
  Receipt Date: 20070417
  Transmission Date: 20071010
  Serious: No
  Sender: FDA-Public Use
  Company Number: WAES 0704USA03554

PATIENT
  Sex: Female

DRUGS (2)
  1. JANUVIA [Suspect]
     Dosage: 100 MG/PO
     Route: 048
  2. AMARYL [Concomitant]

REACTIONS (2)
  - CANDIDIASIS [None]
  - UPPER RESPIRATORY TRACT INFECTION [None]
